FAERS Safety Report 15504529 (Version 2)
Quarter: 2018Q4

REPORT INFORMATION
  Report Type: Report from Study
  Country: US (occurrence: US)
  Receive Date: 20181016
  Receipt Date: 20181113
  Transmission Date: 20190205
  Serious: Yes (Other)
  Sender: FDA-Public Use
  Company Number: US-SA-2018SA278523

PATIENT
  Age: 32 Year
  Sex: Male

DRUGS (4)
  1. TERIFLUNOMIDE. [Suspect]
     Active Substance: TERIFLUNOMIDE
     Indication: MULTIPLE SCLEROSIS
     Dosage: 7 MG
     Route: 048
     Dates: start: 20180905
  2. TERIFLUNOMIDE. [Suspect]
     Active Substance: TERIFLUNOMIDE
     Dosage: 7 MG
     Route: 048
     Dates: end: 20181017
  3. TERIFLUNOMIDE. [Suspect]
     Active Substance: TERIFLUNOMIDE
     Dosage: 14 MG
     Route: 048
     Dates: start: 20181018
  4. LEXAPRO [Concomitant]
     Active Substance: ESCITALOPRAM OXALATE

REACTIONS (12)
  - Flatulence [Recovered/Resolved]
  - Multiple sclerosis relapse [Unknown]
  - Mobility decreased [Unknown]
  - Dyspepsia [Recovered/Resolved]
  - Diarrhoea [Recovered/Resolved]
  - Pain [Unknown]
  - Rash [Unknown]
  - Abdominal discomfort [Recovered/Resolved]
  - Product dose omission [Unknown]
  - Paraesthesia [Recovering/Resolving]
  - Hypoaesthesia [Unknown]
  - Stress [Unknown]

NARRATIVE: CASE EVENT DATE: 201809
